FAERS Safety Report 9241969 (Version 1)
Quarter: 2013Q2

REPORT INFORMATION
  Report Type: Spontaneous
  Country: IT (occurrence: IT)
  Receive Date: 20130419
  Receipt Date: 20130419
  Transmission Date: 20140414
  Serious: Yes (Other)
  Sender: FDA-Public Use
  Company Number: IT-ROCHE-1214596

PATIENT
  Age: 65 Year
  Sex: Female

DRUGS (6)
  1. PEG-INTERFERON ALFA 2A [Suspect]
     Indication: HEPATITIS B
     Route: 065
     Dates: start: 200506, end: 200606
  2. PEG-INTERFERON ALFA 2A [Suspect]
     Dosage: STARTED IN AUGUST
     Route: 065
     Dates: end: 200910
  3. METHYLPREDNISOLONE [Concomitant]
     Route: 065
  4. METHYLPREDNISOLONE [Concomitant]
     Route: 065
  5. METHYLPREDNISOLONE [Concomitant]
     Dosage: STOPPED AFTER 3 FURTHER MONTHS
     Route: 065
  6. LAMIVUDINE [Concomitant]
     Dosage: AFTER TWO MONTHS OF COMBINED THERAPY
     Route: 065
     Dates: start: 200610

REACTIONS (1)
  - Polyneuropathy [Not Recovered/Not Resolved]
